FAERS Safety Report 5160760-1 (Version None)
Quarter: 2006Q4

REPORT INFORMATION
  Report Type: 
  Country: None (occurrence: None)
  Receive Date: 20061119
  Receipt Date: 20060609
  Transmission Date: 20070319
  Serious: No
  Sender: FDA-Public Use
  Company Number: 2006US001298

PATIENT
  Sex: Female

DRUGS (12)
  1. VESICARE [Suspect]
     Indication: DRUG USE FOR UNKNOWN INDICATION
     Dosage: 5 MG
     Route: 065
  2. ASPIRIN [Concomitant]
  3. VASOTEC [Concomitant]
  4. LASIX [Concomitant]
  5. IMDUR [Concomitant]
  6. MINERAL SUPPLEMENTS [Concomitant]
  7. MIRALAX [Concomitant]
  8. ATENOLOL [Concomitant]
  9. PRIMIDONE [Concomitant]
  10. CARDIZEM [Concomitant]
  11. ULTRAM [Concomitant]
  12. ZOLOFT [Concomitant]

REACTIONS (3)
  - ACTIVITIES OF DAILY LIVING IMPAIRED [None]
  - GENERAL PHYSICAL HEALTH DETERIORATION [None]
  - SPEECH DISORDER [None]
